FAERS Safety Report 5197349-4 (Version None)
Quarter: 2006Q4

REPORT INFORMATION
  Report Type: 
  Country: None (occurrence: None)
  Receive Date: 20061228
  Receipt Date: 20061215
  Transmission Date: 20070319
  Serious: Yes (Other)
  Sender: FDA-Public Use
  Company Number: WAES 0612ESP00027

PATIENT
  Age: 70 Year
  Sex: Female

DRUGS (6)
  1. CANCIDAS [Suspect]
     Indication: SYSTEMIC CANDIDA
     Dosage: 50 MG/DAILY IV
     Route: 042
     Dates: start: 20061201, end: 20061213
  2. AMINO ACIDS (+) CARBOHYDRA [Concomitant]
  3. CARBOHYDRATES (+) FAT (UNS [Concomitant]
  4. FLUCONAZOLE [Concomitant]
  5. MEROPENEM [Concomitant]
  6. OMEPRAZOLE [Concomitant]

REACTIONS (1)
  - CHOLESTASIS [None]
